FAERS Safety Report 9368844 (Version 1)
Quarter: 2013Q2

REPORT INFORMATION
  Report Type: Spontaneous
  Country: US (occurrence: US)
  Receive Date: 20130626
  Receipt Date: 20130626
  Transmission Date: 20140414
  Serious: Yes (Hospitalization, Other)
  Sender: FDA-Public Use
  Company Number: US-MERCK-1306USA010122

PATIENT
  Sex: Male

DRUGS (2)
  1. PEGINTRON [Suspect]
     Indication: HEPATITIS C
     Dosage: REDIPEN
     Dates: start: 20130325, end: 20130418
  2. REBETOL [Suspect]
     Indication: HEPATITIS C
     Dosage: UNK
     Route: 048
     Dates: start: 20130325, end: 20130418

REACTIONS (12)
  - Blood glucose increased [Unknown]
  - Blood glucose increased [Recovered/Resolved]
  - Weight decreased [Unknown]
  - Hallucination [Unknown]
  - Loss of consciousness [Unknown]
  - Depressed level of consciousness [Unknown]
  - Mental status changes [Unknown]
  - Hypertension [Unknown]
  - Dysgeusia [Unknown]
  - Crying [Unknown]
  - Decreased appetite [Unknown]
  - Irritability [Unknown]
